FAERS Safety Report 14938435 (Version 1)
Quarter: 2018Q2

REPORT INFORMATION
  Report Type: Report from Study
  Country: BR (occurrence: BR)
  Receive Date: 20180525
  Receipt Date: 20180525
  Transmission Date: 20180711
  Serious: Yes (Other)
  Sender: FDA-Public Use
  Company Number: BR-JNJFOC-20170420420

PATIENT
  Sex: Male

DRUGS (11)
  1. CALDE [Concomitant]
     Active Substance: CALCIUM CARBONATE\CHOLECALCIFEROL
     Route: 065
  2. STELARA [Suspect]
     Active Substance: USTEKINUMAB
     Indication: PSORIASIS
     Route: 058
     Dates: start: 20150805
  3. STALEVO [Concomitant]
     Active Substance: CARBIDOPA\ENTACAPONE\LEVODOPA
     Route: 065
  4. AZUKON [Concomitant]
     Active Substance: GLICLAZIDE
     Route: 065
  5. AAS [Concomitant]
     Active Substance: ASPIRIN
     Route: 065
  6. NEULEPTIL [Concomitant]
     Active Substance: PERICIAZINE
     Route: 065
  7. ERANZ [Concomitant]
     Active Substance: DONEPEZIL HYDROCHLORIDE
     Route: 065
  8. NOLOTIL (METAMIZOLE MAGNESIUM) [Concomitant]
     Active Substance: METAMIZOLE MAGNESIUM
     Route: 065
  9. ANCORON [Concomitant]
     Active Substance: AMIODARONE HYDROCHLORIDE
     Route: 065
  10. OMEPRAZOLE. [Concomitant]
     Active Substance: OMEPRAZOLE
     Route: 065
  11. ASPIRINA [Concomitant]
     Active Substance: ASPIRIN

REACTIONS (5)
  - Dementia [Not Recovered/Not Resolved]
  - Drooling [Unknown]
  - Psoriasis [Not Recovered/Not Resolved]
  - Drug effect incomplete [Not Recovered/Not Resolved]
  - Gait disturbance [Unknown]

NARRATIVE: CASE EVENT DATE: 2017
